FAERS Safety Report 9097425 (Version 3)
Quarter: 2014Q2

REPORT INFORMATION
  Report Type: Report from Study
  Country: DE (occurrence: DE)
  Receive Date: 20130212
  Receipt Date: 20140415
  Transmission Date: 20141212
  Serious: Yes (Hospitalization, Disabling, Other)
  Sender: FDA-Public Use
  Company Number: DE-ELI_LILLY_AND_COMPANY-DE201302000361

PATIENT
  Sex: Female

DRUGS (5)
  1. TERIPARATIDE [Suspect]
     Indication: OSTEOPOROSIS
     Dosage: UNK, QD
     Route: 058
     Dates: start: 20130118
  2. ASS [Concomitant]
  3. VITAMIN D [Concomitant]
  4. DEKRISTOL [Concomitant]
     Dosage: UNK, MONTHLY (1/M)
     Route: 065
  5. CALCIUM [Concomitant]
     Dosage: 300 MG, QD
     Route: 065

REACTIONS (5)
  - Spinal column injury [Not Recovered/Not Resolved]
  - Back pain [Not Recovered/Not Resolved]
  - Asthenia [Not Recovered/Not Resolved]
  - Listless [Not Recovered/Not Resolved]
  - Decreased appetite [Not Recovered/Not Resolved]
